FAERS Safety Report 8521583-6 (Version None)
Quarter: 2012Q3

REPORT INFORMATION
  Report Type: 
  Country: None (occurrence: None)
  Receive Date: 20120719
  Receipt Date: 20120714
  Transmission Date: 20120928
  Serious: Yes (Other)
  Sender: FDA-Public Use
  Company Number: PHHY2012MX061531

PATIENT
  Sex: Female

DRUGS (3)
  1. RASILEZ HCT [Suspect]
     Dosage: 0.5 DF DAILY
     Dates: start: 20090701, end: 20120612
  2. METFORMIN HCL [Suspect]
     Indication: DIABETES MELLITUS
     Dosage: 1 DF DAILY
     Dates: start: 20090101
  3. METFORMIN HCL [Suspect]
     Indication: DIABETES MELLITUS
     Dosage: 1 DF DAILY
     Dates: start: 20090101

REACTIONS (6)
  - HEADACHE [None]
  - AUTONOMIC NERVOUS SYSTEM IMBALANCE [None]
  - SYNCOPE [None]
  - DRY MOUTH [None]
  - VOMITING [None]
  - SOMNOLENCE [None]
